FAERS Safety Report 4473047-7 (Version None)
Quarter: 2004Q4

REPORT INFORMATION
  Report Type: 
  Country: None (occurrence: None)
  Receive Date: 20041013
  Receipt Date: 20040728
  Transmission Date: 20050328
  Serious: Yes (Life-Threatening, Hospitalization)
  Sender: FDA-Public Use
  Company Number: IT-GLAXOSMITHKLINE-B0341194A

PATIENT
  Sex: Male

DRUGS (6)
  1. NEODUPLAMOX [Suspect]
     Dosage: 2G PER DAY
     Route: 048
     Dates: start: 20040706, end: 20040710
  2. PROPOFOL [Concomitant]
     Dates: start: 20040721, end: 20040730
  3. KETAMINE HCL [Concomitant]
     Dates: start: 20040722, end: 20040730
  4. OMEPRAZOLE [Concomitant]
     Indication: STRESS ULCER
     Dates: start: 20040718, end: 20040729
  5. FENTANYL [Concomitant]
  6. KETOPROFEN [Concomitant]

REACTIONS (4)
  - CYTOLYTIC HEPATITIS [None]
  - EYE DISORDER [None]
  - MUCOUS MEMBRANE DISORDER [None]
  - TOXIC EPIDERMAL NECROLYSIS [None]
